FAERS Safety Report 4972201-5 (Version None)
Quarter: 2006Q2

REPORT INFORMATION
  Report Type: 
  Country: None (occurrence: None)
  Receive Date: 20060413
  Receipt Date: 20060324
  Transmission Date: 20061013
  Serious: Yes (Disabling)
  Sender: FDA-Public Use
  Company Number: JP-JPN-A200601043

PATIENT
  Age: 56 Year
  Sex: Male
  Weight: 67 kg

DRUGS (3)
  1. PAXIL [Suspect]
     Indication: OBSESSIVE-COMPULSIVE DISORDER
     Dosage: 20MG TWICE PER DAY
     Route: 048
     Dates: start: 20050101, end: 20060117
  2. MEILAX [Concomitant]
     Indication: DEPRESSION
     Dosage: 2MG PER DAY
     Route: 048
  3. SILECE [Concomitant]
     Dosage: 1MG PER DAY
     Route: 048

REACTIONS (2)
  - EJACULATION FAILURE [None]
  - ERECTILE DYSFUNCTION [None]
